FAERS Safety Report 23518932 (Version 3)
Quarter: 2024Q1

REPORT INFORMATION
  Report Type: Spontaneous
  Country: US (occurrence: US)
  Receive Date: 20240213
  Receipt Date: 20240312
  Transmission Date: 20240409
  Serious: No
  Sender: FDA-Public Use
  Company Number: US-PFIZER INC-202300418381

PATIENT
  Age: 8 Year
  Sex: Male

DRUGS (2)
  1. OXBRYTA [Suspect]
     Active Substance: VOXELOTOR
     Dosage: 900 MG, 1X/DAY
     Route: 048
     Dates: start: 20230227
  2. OXBRYTA [Suspect]
     Active Substance: VOXELOTOR
     Dosage: (300 MG. TABLETS FOR ORAL SUSPENSION, PREPARE 3 TABLETS, ONCE DAILY)
     Route: 048
     Dates: start: 20230228

REACTIONS (1)
  - Therapeutic response unexpected [Unknown]
